FAERS Safety Report 4291048-9 (Version None)
Quarter: 2004Q1

REPORT INFORMATION
  Report Type: 
  Country: None (occurrence: None)
  Receive Date: 20040211
  Receipt Date: 20031103
  Transmission Date: 20041129
  Serious: No
  Sender: FDA-Public Use
  Company Number: US-GLAXOSMITHKLINE-A0432583A

PATIENT
  Age: 60 Year
  Sex: Female

DRUGS (5)
  1. PAROXETINE [Suspect]
     Dosage: 40MG PER DAY
     Route: 048
     Dates: start: 20031001, end: 20031031
  2. PAXIL [Suspect]
     Route: 048
  3. INDERAL [Concomitant]
  4. PREDNISONE [Concomitant]
  5. ADVAIR DISKUS 100/50 [Concomitant]

REACTIONS (1)
  - HEADACHE [None]
